FAERS Safety Report 15436953 (Version 5)
Quarter: 2018Q4

REPORT INFORMATION
  Report Type: Report from Study
  Country: DE (occurrence: DE)
  Receive Date: 20180927
  Receipt Date: 20181101
  Transmission Date: 20190204
  Serious: Yes (Death, Life-Threatening, Hospitalization)
  Sender: FDA-Public Use
  Company Number: DE-GILEAD-2018-0361140

PATIENT
  Age: 61 Year
  Sex: Female
  Weight: 50 kg

DRUGS (18)
  1. KEPPRA [Concomitant]
     Active Substance: LEVETIRACETAM
  2. MOVICOL [Concomitant]
     Active Substance: POLYETHYLENE GLYCOL 3350\POTASSIUM CHLORIDE\SODIUM BICARBONATE\SODIUM CHLORIDE
  3. OXYCODONE [Concomitant]
     Active Substance: OXYCODONE
  4. KALINOR                            /00031402/ [Concomitant]
     Active Substance: POTASSIUM CHLORIDE
  5. AMPHO MORONAL [Concomitant]
     Active Substance: AMPHOTERICIN B
  6. FLUDARABINE [Suspect]
     Active Substance: FLUDARABINE PHOSPHATE
     Indication: BONE MARROW CONDITIONING REGIMEN
     Dosage: 47.5 MG, QD
     Route: 042
     Dates: start: 20180909, end: 20180911
  7. MAGNESIUM VERLA                    /00648601/ [Concomitant]
     Active Substance: MAGNESIUM
  8. TOREM                              /01036501/ [Concomitant]
     Active Substance: TORSEMIDE
  9. VERGENTAN [Concomitant]
     Active Substance: ALIZAPRIDE HYDROCHLORIDE
  10. ACYCLOVIR                          /00587301/ [Concomitant]
     Active Substance: ACYCLOVIR
  11. AXICABTAGENE CILOLEUCEL [Suspect]
     Active Substance: AXICABTAGENE CILOLEUCEL
     Indication: DIFFUSE LARGE B-CELL LYMPHOMA
     Dosage: UNK
     Route: 042
     Dates: start: 20180917, end: 20180917
  12. L-THYROXINE                        /00068001/ [Concomitant]
     Active Substance: LEVOTHYROXINE
  13. PANTOZOL [Concomitant]
     Active Substance: PANTOPRAZOLE SODIUM
  14. VANCOMYCIN [Concomitant]
     Active Substance: VANCOMYCIN
  15. CLEXANE [Concomitant]
     Active Substance: ENOXAPARIN SODIUM
  16. CYCLOPHOSPHAMIDE. [Suspect]
     Active Substance: CYCLOPHOSPHAMIDE
     Indication: BONE MARROW CONDITIONING REGIMEN
     Dosage: 790 MG, QD
     Route: 042
     Dates: start: 20180909, end: 20180911
  17. COTRIM FORTE [Concomitant]
     Active Substance: SULFAMETHOXAZOLE\TRIMETHOPRIM
  18. MEROPEN                            /01250501/ [Concomitant]
     Active Substance: MEROPENEM

REACTIONS (8)
  - Cytokine release syndrome [Recovered/Resolved]
  - Respiratory failure [Fatal]
  - B-cell lymphoma [Fatal]
  - Hypotension [Recovered/Resolved]
  - Disorientation [Recovered/Resolved]
  - General physical health deterioration [Not Recovered/Not Resolved]
  - Somnolence [Recovered/Resolved]
  - Infection [Fatal]

NARRATIVE: CASE EVENT DATE: 20180918
